FAERS Safety Report 19262542 (Version 2)
Quarter: 2021Q2

REPORT INFORMATION
  Report Type: Report from Study
  Country: None (occurrence: DE)
  Receive Date: 20210517
  Receipt Date: 20210527
  Transmission Date: 20210717
  Serious: Yes (Death, Hospitalization)
  Sender: FDA-Public Use
  Company Number: DE-ABBVIE-21K-062-3906464-00

PATIENT
  Age: 69 Year
  Sex: Male

DRUGS (10)
  1. METOPROLOL. [Concomitant]
     Active Substance: METOPROLOL
     Indication: PRODUCT USED FOR UNKNOWN INDICATION
  2. DUODOPA [Suspect]
     Active Substance: CARBIDOPA\LEVODOPA
  3. SAB SIMPLEX [Concomitant]
     Indication: PRODUCT USED FOR UNKNOWN INDICATION
  4. DUODOPA [Suspect]
     Active Substance: CARBIDOPA\LEVODOPA
     Indication: PARKINSON^S DISEASE
     Dosage: MD 14 ML CRD 3.1 ML/H ED 1.5 ML?20 MG/ML 5 MG/ML
     Route: 050
     Dates: start: 20190822
  5. SIMVASTATIN. [Concomitant]
     Active Substance: SIMVASTATIN
     Indication: PRODUCT USED FOR UNKNOWN INDICATION
  6. INSULIN [Concomitant]
     Active Substance: INSULIN NOS
     Indication: PRODUCT USED FOR UNKNOWN INDICATION
  7. METFORMIN [Concomitant]
     Active Substance: METFORMIN HYDROCHLORIDE
     Indication: PRODUCT USED FOR UNKNOWN INDICATION
  8. ELIQUIS [Concomitant]
     Active Substance: APIXABAN
     Indication: PRODUCT USED FOR UNKNOWN INDICATION
  9. CLOZAPIN [Concomitant]
     Active Substance: CLOZAPINE
     Indication: PRODUCT USED FOR UNKNOWN INDICATION
  10. LEVETIRACETAM. [Concomitant]
     Active Substance: LEVETIRACETAM
     Indication: PRODUCT USED FOR UNKNOWN INDICATION

REACTIONS (1)
  - Toxic encephalopathy [Fatal]

NARRATIVE: CASE EVENT DATE: 20210507
